FAERS Safety Report 9057408 (Version 1)
Quarter: 2013Q1

REPORT INFORMATION
  Report Type: Spontaneous
  Country: CH (occurrence: CH)
  Receive Date: 20130204
  Receipt Date: 20130204
  Transmission Date: 20140127
  Serious: Yes (Other)
  Sender: FDA-Public Use
  Company Number: CH-009507513-1301CHE007071

PATIENT
  Age: 84 Year
  Sex: Female

DRUGS (10)
  1. COSAAR PLUS [Suspect]
     Indication: HYPERTENSION
     Dosage: 0.5 DF (100/25MG), BID
     Route: 048
     Dates: end: 201301
  2. SAFLUTAN [Concomitant]
     Indication: INTRAOCULAR PRESSURE INCREASED
     Dosage: STRENGTH-15MICROGRAM PER ML, ROUTE OF ADMINISTRATION- EYE
     Route: 031
  3. LOSARTAN POTASSIUM [Concomitant]
     Dosage: UNK
     Dates: end: 201301
  4. PLAVIX [Concomitant]
     Dosage: UNK
     Dates: end: 201301
  5. PROCORALAN [Concomitant]
     Dosage: UNK
     Route: 048
     Dates: end: 201301
  6. ASPIRIN CARDIO [Concomitant]
     Dosage: UNK
     Route: 048
  7. AMLODIPINE [Concomitant]
     Dosage: UNK
     Route: 048
  8. CRESTOR [Concomitant]
     Dosage: UNK
     Route: 048
  9. SERETIDE [Concomitant]
     Dosage: UNK
     Route: 055
  10. VENTOLIN (ALBUTEROL) [Concomitant]
     Dosage: PRN
     Route: 055

REACTIONS (8)
  - Blindness [Unknown]
  - Vitreous floaters [Unknown]
  - Corneal opacity [Not Recovered/Not Resolved]
  - Corneal degeneration [Not Recovered/Not Resolved]
  - Corneal dystrophy [Unknown]
  - Pain [Unknown]
  - Photophobia [Unknown]
  - Vision blurred [Unknown]
